FAERS Safety Report 15036453 (Version 1)
Quarter: 2018Q2

REPORT INFORMATION
  Report Type: Spontaneous
  Country: DE (occurrence: DE)
  Receive Date: 20180620
  Receipt Date: 20180620
  Transmission Date: 20180711
  Serious: Yes (Hospitalization, Other)
  Sender: FDA-Public Use
  Company Number: DE-JNJFOC-20180624981

PATIENT
  Age: 25 Year
  Sex: Female

DRUGS (2)
  1. METHOCARBAMOL. [Interacting]
     Active Substance: METHOCARBAMOL
     Indication: PRODUCT USED FOR UNKNOWN INDICATION
     Route: 065
  2. TRAMADOL HYDROCHLORIDE. [Suspect]
     Active Substance: TRAMADOL HYDROCHLORIDE
     Indication: PRODUCT USED FOR UNKNOWN INDICATION
     Route: 065

REACTIONS (5)
  - Presyncope [Unknown]
  - Drug prescribing error [Unknown]
  - Dizziness [Unknown]
  - Labelled drug-drug interaction medication error [Unknown]
  - Pallor [Unknown]

NARRATIVE: CASE EVENT DATE: 20151010
